FAERS Safety Report 18233896 (Version 2)
Quarter: 2020Q3

REPORT INFORMATION
  Report Type: Spontaneous
  Country: US (occurrence: US)
  Receive Date: 20200904
  Receipt Date: 20200904
  Transmission Date: 20201103
  Serious: No
  Sender: FDA-Public Use
  Company Number: US-THERATECHNOLOGIES INC.-2020-THE-TES-000156

PATIENT
  Age: 56 Year
  Sex: Male

DRUGS (1)
  1. EGRIFTA SV [Suspect]
     Active Substance: TESAMORELIN ACETATE
     Indication: PRODUCT USED FOR UNKNOWN INDICATION
     Dosage: UNK
     Route: 058
     Dates: start: 202001

REACTIONS (3)
  - Product packaging issue [Unknown]
  - Product dose omission issue [Unknown]
  - Product use issue [Unknown]

NARRATIVE: CASE EVENT DATE: 20200824
